FAERS Safety Report 9226124 (Version 1)
Quarter: 2013Q2

REPORT INFORMATION
  Report Type: Spontaneous
  Country: US (occurrence: US)
  Receive Date: 20130411
  Receipt Date: 20130411
  Transmission Date: 20140414
  Serious: No
  Sender: FDA-Public Use
  Company Number: US-ASTELLAS-2013US000603

PATIENT
  Sex: Female
  Weight: 54 kg

DRUGS (2)
  1. PROTOPIC [Suspect]
     Indication: PRODUCT USED FOR UNKNOWN INDICATION
     Dosage: 0.03 %, UID/QD
     Route: 061
     Dates: start: 20130107, end: 20130107
  2. DESONIDE [Concomitant]
     Indication: RASH
     Dosage: 0.05 %, BID
     Route: 061
     Dates: start: 20130107

REACTIONS (1)
  - Dermatitis contact [Unknown]
